FAERS Safety Report 4718521-0 (Version None)
Quarter: 2005Q3

REPORT INFORMATION
  Report Type: 
  Country: None (occurrence: None)
  Receive Date: 20050720
  Receipt Date: 20050711
  Transmission Date: 20060218
  Serious: Yes (Hospitalization)
  Sender: FDA-Public Use
  Company Number: PHHO2005TN10995

PATIENT
  Age: 64 Year
  Sex: Female

DRUGS (4)
  1. CGS 20267 T30748+TAB [Suspect]
     Indication: BREAST CANCER METASTATIC
     Dosage: 2.5 MG, QD
     Route: 048
     Dates: start: 20050601, end: 20050623
  2. CGS 20267 T30748+TAB [Suspect]
     Dosage: 2.5 MG, QD
     Route: 048
     Dates: end: 20050623
  3. GLIBENCLAMIDE [Concomitant]
  4. METFORMIN HCL [Concomitant]

REACTIONS (7)
  - HYPERGLYCAEMIA [None]
  - HYPERTENSION [None]
  - INFECTION [None]
  - PYREXIA [None]
  - RENAL FAILURE [None]
  - RENAL IMPAIRMENT [None]
  - TOOTH ABSCESS [None]
